FAERS Safety Report 5528855-8 (Version None)
Quarter: 2007Q4

REPORT INFORMATION
  Report Type: 
  Country: None (occurrence: None)
  Receive Date: 20071113
  Receipt Date: 20070907
  Transmission Date: 20080405
  Serious: No
  Sender: FDA-Public Use
  Company Number: 200716478US

PATIENT
  Sex: Male

DRUGS (1)
  1. APIDRA [Suspect]

REACTIONS (1)
  - UNEVALUABLE EVENT [None]
